FAERS Safety Report 16030951 (Version 1)
Quarter: 2019Q1

REPORT INFORMATION
  Report Type: Spontaneous
  Country: US (occurrence: US)
  Receive Date: 20190304
  Receipt Date: 20190304
  Transmission Date: 20190418
  Serious: Yes (Other)
  Sender: FDA-Public Use
  Company Number: US-PFIZER INC-2019084879

PATIENT
  Age: 22 Year
  Sex: Female
  Weight: 58.6 kg

DRUGS (1)
  1. MEDROXYPROGESTERONE ACETATE. [Suspect]
     Active Substance: MEDROXYPROGESTERONE ACETATE
     Indication: CONTRACEPTION
     Dosage: 150 MG, EVERY 3 MONTHS(ADMINISTERED IN THE RIGHT UPPER QUADRANT OF THE BUTTOCK)
     Route: 030
     Dates: start: 20181204, end: 20181204

REACTIONS (2)
  - Drug ineffective [Not Recovered/Not Resolved]
  - Unintended pregnancy [Not Recovered/Not Resolved]

NARRATIVE: CASE EVENT DATE: 20190213
